FAERS Safety Report 11440552 (Version 1)
Quarter: 2015Q3

REPORT INFORMATION
  Report Type: Spontaneous
  Country: US (occurrence: None)
  Receive Date: 20150831
  Receipt Date: 20150831
  Transmission Date: 20151125
  Serious: No
  Sender: FDA-Public Use
  Company Number: None

PATIENT
  Age: 26 Year
  Sex: Male
  Weight: 95.26 kg

DRUGS (5)
  1. ASTALINE SPRAY [Concomitant]
  2. ALLEGRA-D [Concomitant]
     Active Substance: FEXOFENADINE\PSEUDOEPHEDRINE
  3. LEVAQUIN [Suspect]
     Active Substance: LEVOFLOXACIN
     Indication: SINUSITIS
  4. GUAFINOSENE [Concomitant]
  5. CETEREZINE [Concomitant]

REACTIONS (4)
  - Tendon pain [None]
  - Arthralgia [None]
  - Myalgia [None]
  - Musculoskeletal pain [None]

NARRATIVE: CASE EVENT DATE: 20150216
